FAERS Safety Report 14798419 (Version 5)
Quarter: 2018Q4

REPORT INFORMATION
  Report Type: Spontaneous
  Country: US (occurrence: US)
  Receive Date: 20180424
  Receipt Date: 20181016
  Transmission Date: 20190204
  Serious: No
  Sender: FDA-Public Use
  Company Number: US-PFIZER INC-2018165921

PATIENT
  Age: 53 Year
  Sex: Female

DRUGS (2)
  1. XELJANZ XR [Suspect]
     Active Substance: TOFACITINIB CITRATE
     Dosage: 11 MG, UNK
     Dates: start: 201803
  2. XELJANZ XR [Suspect]
     Active Substance: TOFACITINIB CITRATE
     Dosage: 11 MG, UNK
     Dates: start: 201803, end: 2018

REACTIONS (10)
  - Pain [Unknown]
  - Urinary tract infection [Unknown]
  - Headache [Recovering/Resolving]
  - Faeces discoloured [Unknown]
  - Drug hypersensitivity [Unknown]
  - Sinus disorder [Unknown]
  - Faeces soft [Unknown]
  - Musculoskeletal stiffness [Unknown]
  - Swelling [Unknown]
  - Diarrhoea [Unknown]

NARRATIVE: CASE EVENT DATE: 2018
